FAERS Safety Report 4831837-2 (Version None)
Quarter: 2005Q4

REPORT INFORMATION
  Report Type: 
  Country: None (occurrence: None)
  Receive Date: 20051118
  Receipt Date: 20051115
  Transmission Date: 20060501
  Serious: Yes (Life-Threatening, Hospitalization)
  Sender: FDA-Public Use
  Company Number: NO-SANOFI-SYNTHELABO-F01200502457

PATIENT
  Sex: Male

DRUGS (3)
  1. ELOXATIN [Suspect]
     Indication: BILE DUCT CANCER NON-RESECTABLE
     Dosage: UNKNOWN
     Dates: start: 20050801, end: 20051025
  2. FLUOROURACIL [Suspect]
     Indication: BILE DUCT CANCER NON-RESECTABLE
     Dates: start: 20050801
  3. CALCIUM LEVOFOLINATE [Concomitant]
     Dosage: UNKNOWN
     Dates: start: 20050801

REACTIONS (3)
  - HAEMOLYTIC ANAEMIA [None]
  - PLATELET COUNT DECREASED [None]
  - RENAL FAILURE [None]
